FAERS Safety Report 22296808 (Version 1)
Quarter: 2023Q2

REPORT INFORMATION
  Report Type: Report from Study
  Country: US (occurrence: US)
  Receive Date: 20230509
  Receipt Date: 20230509
  Transmission Date: 20230721
  Serious: Yes (Hospitalization)
  Sender: FDA-Public Use
  Company Number: US-ABBVIE-4757435

PATIENT
  Sex: Female

DRUGS (1)
  1. RINVOQ [Suspect]
     Active Substance: UPADACITINIB
     Indication: Product used for unknown indication
     Route: 048
     Dates: start: 20230224, end: 20230502

REACTIONS (4)
  - Gastritis [Recovering/Resolving]
  - Back pain [Unknown]
  - Chest pain [Unknown]
  - Ulcer [Recovering/Resolving]
